FAERS Safety Report 4986447-3 (Version None)
Quarter: 2006Q2

REPORT INFORMATION
  Report Type: 
  Country: None (occurrence: None)
  Receive Date: 20060424
  Receipt Date: 20060411
  Transmission Date: 20061013
  Serious: Yes (Hospitalization)
  Sender: FDA-Public Use
  Company Number: 200611553GDS

PATIENT
  Age: 40 Year
  Sex: Female

DRUGS (5)
  1. CIPROFLOXACIN [Suspect]
     Dosage: 500 MG, QOD
     Dates: start: 20031103
  2. NEULASTA [Suspect]
     Indication: CHEMOTHERAPY
  3. DOXORUBICIN HCL [Suspect]
     Dosage: 40 MG/M2
  4. CYCLOPHOSPHAMIDE [Suspect]
     Dosage: 40 MG/M2
  5. DOCETAXEL [Suspect]
     Dosage: 60 MG/M2

REACTIONS (2)
  - CONDITION AGGRAVATED [None]
  - CROHN'S DISEASE [None]
